FAERS Safety Report 6984358-5 (Version None)
Quarter: 2010Q3

REPORT INFORMATION
  Report Type: 
  Country: None (occurrence: None)
  Receive Date: 20100915
  Receipt Date: 20100830
  Transmission Date: 20110219
  Serious: Yes (Other)
  Sender: FDA-Public Use
  Company Number: US-BAYER-201018513NA

PATIENT
  Age: 28 Year
  Sex: Female
  Weight: 70 kg

DRUGS (24)
  1. YASMIN [Suspect]
     Indication: MENSTRUAL CYCLE MANAGEMENT
     Route: 048
     Dates: start: 20080501, end: 20090701
  2. IBUPROFEN [Concomitant]
  3. CEFUROXIME [Concomitant]
  4. FIORICET [Concomitant]
  5. NEXIUM [Concomitant]
  6. PAROXETINE HCL [Concomitant]
  7. MULTI-VITAMIN [Concomitant]
  8. BIOTIN [Concomitant]
  9. FLAXSEED OIL [Concomitant]
  10. DOCUSATE SODIUM [Concomitant]
  11. FUROSEMIDE [Concomitant]
  12. SARAFERN [Concomitant]
  13. PAXIL [Concomitant]
  14. LUNESTA [Concomitant]
  15. CRESTOR [Concomitant]
  16. CRESTOR [Concomitant]
     Dates: start: 20090701
  17. CEFTIN [Concomitant]
  18. MULTI-VITAMIN [Concomitant]
  19. BIOTIN [Concomitant]
  20. FIORICET [Concomitant]
  21. FLAXSEED OIL [Concomitant]
  22. COLACE [Concomitant]
  23. VALERIAN [Concomitant]
  24. WARFARIN SODIUM [Concomitant]
     Dosage: 3.0

REACTIONS (11)
  - BACK PAIN [None]
  - DEEP VEIN THROMBOSIS [None]
  - ERYTHEMA [None]
  - HYPOAESTHESIA [None]
  - ILIAC ARTERY EMBOLISM [None]
  - JOINT SWELLING [None]
  - OEDEMA PERIPHERAL [None]
  - PAIN IN EXTREMITY [None]
  - SCIATICA [None]
  - SPIDER VEIN [None]
  - VEIN DISORDER [None]
